FAERS Safety Report 8598458-X (Version None)
Quarter: 2012Q3

REPORT INFORMATION
  Report Type: 
  Country: None (occurrence: None)
  Receive Date: 20120816
  Receipt Date: 20120809
  Transmission Date: 20120928
  Serious: Yes (Death, Hospitalization)
  Sender: FDA-Public Use
  Company Number: US-EISAI INC-E3810-05797-SOL-US

PATIENT
  Sex: Male

DRUGS (1)
  1. ACIPHEX [Suspect]
     Route: 048

REACTIONS (7)
  - DYSPNOEA [None]
  - CHEST PAIN [None]
  - PULMONARY CONGESTION [None]
  - WHEEZING [None]
  - DEATH [None]
  - FATIGUE [None]
  - COUGH [None]
